FAERS Safety Report 8225143-6 (Version None)
Quarter: 2012Q1

REPORT INFORMATION
  Report Type: 
  Country: None (occurrence: None)
  Receive Date: 20120307
  Receipt Date: 20090909
  Transmission Date: 20120608
  Serious: No
  Sender: FDA-Public Use
  Company Number: PHEH2009US11558

PATIENT
  Sex: Male

DRUGS (1)
  1. AFINITOR [Suspect]
     Dosage: 5 MG

REACTIONS (6)
  - WEIGHT INCREASED [None]
  - ORAL PAIN [None]
  - SOMNOLENCE [None]
  - OROPHARYNGEAL PAIN [None]
  - FATIGUE [None]
  - DRUG INEFFECTIVE [None]
